FAERS Safety Report 8001880-3 (Version None)
Quarter: 2011Q4

REPORT INFORMATION
  Report Type: 
  Country: None (occurrence: None)
  Receive Date: 20111222
  Receipt Date: 20111220
  Transmission Date: 20120403
  Serious: No
  Sender: FDA-Public Use
  Company Number: US-B.I. PHARMACEUTICALS,INC./RIDGEFIELD-2011-BP-28557BP

PATIENT
  Age: 71 Year
  Sex: Female

DRUGS (3)
  1. LOVASTATIN [Concomitant]
  2. TRADJENTA [Suspect]
  3. INSULIN [Concomitant]

REACTIONS (3)
  - VOMITING [None]
  - DIARRHOEA [None]
  - NAUSEA [None]
